FAERS Safety Report 12946818 (Version 1)
Quarter: 2016Q4

REPORT INFORMATION
  Report Type: Other
  Country: CN (occurrence: CN)
  Receive Date: 20161116
  Receipt Date: 20161116
  Transmission Date: 20170207
  Serious: Yes (Hospitalization, Other)
  Sender: FDA-Public Use
  Company Number: CN-TAKEDA-2016MPI009726

PATIENT
  Age: 59 Year
  Sex: Female
  Weight: 56 kg

DRUGS (2)
  1. DEXAMETHASONE. [Suspect]
     Active Substance: DEXAMETHASONE
     Indication: PLASMA CELL MYELOMA
     Dosage: UNK
     Route: 065
  2. VELCADE [Suspect]
     Active Substance: BORTEZOMIB
     Indication: PLASMA CELL MYELOMA
     Dosage: 1.75 MG, QD
     Route: 041
     Dates: start: 20160406, end: 20160416

REACTIONS (5)
  - Bone marrow failure [Recovering/Resolving]
  - Rhinorrhoea [Unknown]
  - Nasal obstruction [Unknown]
  - Productive cough [Unknown]
  - Pyrexia [Unknown]

NARRATIVE: CASE EVENT DATE: 20160502
